FAERS Safety Report 25647151 (Version 2)
Quarter: 2025Q3

REPORT INFORMATION
  Report Type: Report from Study
  Country: ZA (occurrence: ZA)
  Receive Date: 20250806
  Receipt Date: 20250815
  Transmission Date: 20251021
  Serious: Yes (Death)
  Sender: AMGEN
  Company Number: ZA-AMGEN-ZAFSP2025153123

PATIENT
  Age: 40 Year
  Sex: Male

DRUGS (1)
  1. ARANESP [Suspect]
     Active Substance: DARBEPOETIN ALFA
     Indication: Chronic kidney disease
     Route: 065
     Dates: start: 20190901

REACTIONS (1)
  - Death [Fatal]
